FAERS Safety Report 17581436 (Version 1)
Quarter: 2020Q1

REPORT INFORMATION
  Report Type: Spontaneous
  Country: SK (occurrence: SK)
  Receive Date: 20200325
  Receipt Date: 20200325
  Transmission Date: 20200409
  Serious: Yes (Other)
  Sender: FDA-Public Use
  Company Number: SK-ELI_LILLY_AND_COMPANY-SK202003007764

PATIENT
  Sex: Female

DRUGS (5)
  1. TOUJEO [Suspect]
     Active Substance: INSULIN GLARGINE
     Indication: TYPE 1 DIABETES MELLITUS
     Dosage: UNK, UNKNOWN
     Route: 058
     Dates: start: 2017
  2. INSULIN GLARGINE [Suspect]
     Active Substance: INSULIN GLARGINE
     Indication: TYPE 1 DIABETES MELLITUS
     Dosage: 24 INTERNATIONAL UNIT, UNKNOWN
     Route: 058
     Dates: start: 2004, end: 2017
  3. APIDRA [Suspect]
     Active Substance: INSULIN GLULISINE
     Dosage: 7 INTERNATIONAL UNIT, DAILY
     Route: 058
     Dates: start: 2017
  4. APIDRA [Suspect]
     Active Substance: INSULIN GLULISINE
     Indication: TYPE 1 DIABETES MELLITUS
     Dosage: 6 INTERNATIONAL UNIT, EACH MORNING
     Route: 058
     Dates: start: 2017
  5. APIDRA [Suspect]
     Active Substance: INSULIN GLULISINE
     Dosage: 7 INTERNATIONAL UNIT, EACH EVENING
     Route: 058
     Dates: start: 2017

REACTIONS (3)
  - Hypoglycaemia [Recovering/Resolving]
  - Hyperglycaemia [Recovering/Resolving]
  - Diabetes mellitus inadequate control [Recovering/Resolving]
